FAERS Safety Report 12168285 (Version 1)
Quarter: 2016Q1

REPORT INFORMATION
  Report Type: Spontaneous
  Country: US (occurrence: US)
  Receive Date: 20160310
  Receipt Date: 20160310
  Transmission Date: 20160526
  Serious: Yes (Hospitalization, Disabling, Other)
  Sender: FDA-Public Use
  Company Number: US-OTSUKA-2016_005336

PATIENT
  Age: 29 Year
  Sex: Male

DRUGS (13)
  1. BUSULFEX [Suspect]
     Active Substance: BUSULFAN
     Indication: PROPHYLAXIS AGAINST GRAFT VERSUS HOST DISEASE
     Dosage: UNK
     Route: 065
     Dates: start: 20150212
  2. MAGNESIUM SULFATE. [Concomitant]
     Active Substance: MAGNESIUM SULFATE
     Dosage: DECREASE IN DOSE
     Route: 042
  3. BUDESONIDE. [Concomitant]
     Active Substance: BUDESONIDE
     Dosage: 1 DF, TID
     Route: 048
     Dates: start: 20151210
  4. LISINOPRIL. [Concomitant]
     Active Substance: LISINOPRIL
     Indication: TACHYCARDIA
     Dosage: UNK
     Route: 065
  5. MAGNESIUM SULFATE. [Concomitant]
     Active Substance: MAGNESIUM SULFATE
     Indication: HYPOMAGNESAEMIA
     Dosage: 4 G, EVERY TUESDAY AND FRIDAY AT HOME
     Route: 042
  6. AMBIEN [Concomitant]
     Active Substance: ZOLPIDEM TARTRATE
     Indication: INSOMNIA
     Dosage: 1 DF, AS REQUIRED
     Route: 065
  7. METHOTREXATE [Suspect]
     Active Substance: METHOTREXATE
     Indication: PROPHYLAXIS AGAINST GRAFT VERSUS HOST DISEASE
     Dosage: UNK
     Route: 065
     Dates: start: 20150212
  8. CYTOXAN LYOPHILIZED [Suspect]
     Active Substance: CYCLOPHOSPHAMIDE
     Indication: PROPHYLAXIS AGAINST GRAFT VERSUS HOST DISEASE
     Dosage: 1 G VIAL
     Route: 065
     Dates: start: 20150212
  9. TACROLIMUS. [Suspect]
     Active Substance: TACROLIMUS
     Indication: PROPHYLAXIS AGAINST GRAFT VERSUS HOST DISEASE
     Dosage: UNK
     Route: 065
     Dates: start: 20150212
  10. BUDESONIDE. [Concomitant]
     Active Substance: BUDESONIDE
     Indication: PRODUCT USED FOR UNKNOWN INDICATION
     Dosage: UNK
     Route: 065
     Dates: start: 20150522
  11. LISINOPRIL. [Concomitant]
     Active Substance: LISINOPRIL
     Indication: HYPERTENSION
  12. METOPROLOL. [Concomitant]
     Active Substance: METOPROLOL
     Indication: HYPERTENSION
     Dosage: UNK
     Route: 065
  13. METOPROLOL. [Concomitant]
     Active Substance: METOPROLOL
     Indication: TACHYCARDIA

REACTIONS (34)
  - Road traffic accident [Recovered/Resolved]
  - Fall [Unknown]
  - Migraine [Unknown]
  - Rhinorrhoea [Recovering/Resolving]
  - Pneumonia [Unknown]
  - Pyrexia [Recovered/Resolved]
  - Graft versus host disease in gastrointestinal tract [Recovering/Resolving]
  - Spinal compression fracture [Recovering/Resolving]
  - Cough [Recovered/Resolved]
  - Graft versus host disease in gastrointestinal tract [Recovering/Resolving]
  - Dizziness [Recovering/Resolving]
  - Sciatica [Recovering/Resolving]
  - Dyspnoea [Recovered/Resolved]
  - Hypogammaglobulinaemia [Recovering/Resolving]
  - Klebsiella sepsis [Recovered/Resolved]
  - Pancytopenia [Unknown]
  - Cushingoid [Unknown]
  - Device related infection [Recovered/Resolved]
  - Catheter site related reaction [Unknown]
  - Osteopenia [Recovered/Resolved]
  - Graft versus host disease [Recovering/Resolving]
  - Graft versus host disease in skin [Recovering/Resolving]
  - Pneumonia [Recovered/Resolved]
  - Wheezing [Recovering/Resolving]
  - Asthenia [Not Recovered/Not Resolved]
  - Cytomegalovirus viraemia [Recovered/Resolved]
  - Rash pruritic [Recovering/Resolving]
  - Graft versus host disease [Recovering/Resolving]
  - Febrile neutropenia [Recovered/Resolved]
  - Muscle spasms [Not Recovered/Not Resolved]
  - Musculoskeletal chest pain [Unknown]
  - Depression [Recovering/Resolving]
  - Pain [Recovering/Resolving]
  - Pain [Recovering/Resolving]

NARRATIVE: CASE EVENT DATE: 201503
